FAERS Safety Report 6648953-5 (Version None)
Quarter: 2010Q1

REPORT INFORMATION
  Report Type: 
  Country: None (occurrence: None)
  Receive Date: 20100319
  Receipt Date: 20100308
  Transmission Date: 20100710
  Serious: Yes (Other)
  Sender: FDA-Public Use
  Company Number: TRP_06839_2010

PATIENT
  Age: 68 Year
  Sex: Male

DRUGS (2)
  1. RIBAVIRIN [Suspect]
     Indication: HEPATITIS C
     Dosage: (800 MG, PER DAY [THEN LOWERED TO 600 MG/DAY] ORAL
     Route: 048
  2. PEGINTERFERON ALFA-2A (PEGYLATED INTERFERON ALPHA-2A) [Suspect]
     Indication: HEPATITIS C
     Dosage: (100 UG 1X/WEEK SUBCUTANEOUS)
     Route: 058

REACTIONS (4)
  - ANAEMIA [None]
  - HYPOXIA [None]
  - INTERSTITIAL LUNG DISEASE [None]
  - TREATMENT FAILURE [None]
